FAERS Safety Report 5738744-1 (Version None)
Quarter: 2008Q2

REPORT INFORMATION
  Report Type: 
  Country: None (occurrence: None)
  Receive Date: 20080512
  Receipt Date: 20080512
  Transmission Date: 20081010
  Serious: Yes (Hospitalization)
  Sender: FDA-Public Use
  Company Number: None

PATIENT
  Age: 54 Year
  Sex: Female

DRUGS (1)
  1. IBUPROFEN [Suspect]
     Indication: PAIN
     Dosage: 400MG Q6 HOURS OPHTHALMIC FEW DAYS
     Route: 047

REACTIONS (12)
  - ABDOMINAL PAIN [None]
  - ASTHENIA [None]
  - ENDOSCOPY ABNORMAL [None]
  - GASTRIC ULCER [None]
  - HAEMATEMESIS [None]
  - HAEMOGLOBIN DECREASED [None]
  - HYPOTENSION [None]
  - HYPOTHERMIA [None]
  - MELAENA [None]
  - SYNCOPE [None]
  - TACHYCARDIA [None]
  - THROMBOSIS [None]
